FAERS Safety Report 24659330 (Version 5)
Quarter: 2025Q1

REPORT INFORMATION
  Report Type: Spontaneous
  Country: US (occurrence: US)
  Receive Date: 20241125
  Receipt Date: 20250124
  Transmission Date: 20250408
  Serious: No
  Sender: PFIZER
  Company Number: US-PFIZER INC-202400305767

PATIENT
  Age: 10 Year
  Sex: Female

DRUGS (1)
  1. GENOTROPIN [Suspect]
     Active Substance: SOMATROPIN
     Dosage: 0.4 MG, DAILY

REACTIONS (5)
  - Rash [Unknown]
  - Wrong technique in device usage process [Unknown]
  - Wrong product administered [Unknown]
  - Product communication issue [Unknown]
  - Incorrect dose administered by device [Unknown]
